FAERS Safety Report 9097849 (Version 2)
Quarter: 2013Q2

REPORT INFORMATION
  Report Type: Other
  Country: BR (occurrence: BR)
  Receive Date: 20130212
  Receipt Date: 20130403
  Transmission Date: 20140414
  Serious: Yes (Other)
  Sender: FDA-Public Use
  Company Number: BR-BRISTOL-MYERS SQUIBB COMPANY-17363292

PATIENT
  Age: 57 Year
  Sex: Male

DRUGS (6)
  1. EFAVIRENZ [Suspect]
     Indication: HIV INFECTION
     Route: 048
     Dates: start: 200808, end: 201012
  2. ATAZANAVIR [Suspect]
     Indication: HIV INFECTION
     Dates: start: 201012
  3. ZIDOVUDINE [Suspect]
     Indication: HIV INFECTION
     Route: 065
     Dates: start: 200808, end: 201012
  4. LAMIVUDINE [Suspect]
     Indication: HIV INFECTION
     Dosage: AUG2008 TO DEC2010, DEC2010 TO ONG
     Dates: start: 200808
  5. RITONAVIR [Suspect]
     Indication: HIV INFECTION
     Dates: start: 201012
  6. TENOFOVIR DISOPROXIL FUMARATE [Suspect]
     Indication: HIV INFECTION
     Dates: start: 201012

REACTIONS (2)
  - Drug ineffective [Unknown]
  - Porphyria non-acute [Not Recovered/Not Resolved]
